FAERS Safety Report 6254653-6 (Version None)
Quarter: 2009Q3

REPORT INFORMATION
  Report Type: 
  Country: None (occurrence: None)
  Receive Date: 20090702
  Receipt Date: 20090624
  Transmission Date: 20100115
  Serious: Yes (Hospitalization)
  Sender: FDA-Public Use
  Company Number: B0580344A

PATIENT
  Sex: Female

DRUGS (4)
  1. SALBUMOL [Suspect]
     Dosage: 20MGL SEE DOSAGE TEXT
     Route: 042
     Dates: start: 20090302, end: 20090413
  2. ATOSIBAN [Suspect]
     Route: 042
     Dates: start: 20090302, end: 20090413
  3. ADALAT [Suspect]
     Route: 048
  4. CELESTENE [Concomitant]
     Route: 065
     Dates: start: 20090403, end: 20090404

REACTIONS (3)
  - COLITIS [None]
  - DRUG EXPOSURE DURING PREGNANCY [None]
  - UTERINE HYPERTONUS [None]
